FAERS Safety Report 26185064 (Version 1)
Quarter: 2025Q4

REPORT INFORMATION
  Report Type: Spontaneous
  Country: US (occurrence: US)
  Receive Date: 20251222
  Receipt Date: 20251222
  Transmission Date: 20260117
  Serious: No
  Sender: BIOGEN
  Company Number: US-BIOGEN-2095917

PATIENT
  Age: 22 Year
  Sex: Female

DRUGS (1)
  1. VUMERITY [Suspect]
     Active Substance: DIROXIMEL FUMARATE
     Indication: Product used for unknown indication

REACTIONS (4)
  - Gastrointestinal disorder [Unknown]
  - Drug ineffective [Unknown]
  - Feeding disorder [Unknown]
  - Vomiting [Unknown]
